FAERS Safety Report 25689124 (Version 1)
Quarter: 2025Q3

REPORT INFORMATION
  Report Type: Spontaneous
  Country: EU (occurrence: EU)
  Receive Date: 20250818
  Receipt Date: 20250818
  Transmission Date: 20251021
  Serious: Yes (Death, Other)
  Sender: EPIC PHARM
  Company Number: EU-EPICPHARMA-DK-2025EPCLIT00924

PATIENT
  Age: 44 Year
  Sex: Male

DRUGS (1)
  1. TERBUTALINE SULFATE [Suspect]
     Active Substance: TERBUTALINE SULFATE
     Indication: Product used for unknown indication
     Route: 065

REACTIONS (1)
  - Sudden death [Fatal]
